FAERS Safety Report 12809920 (Version 1)
Quarter: 2016Q4

REPORT INFORMATION
  Report Type: Report from Study
  Country: US (occurrence: US)
  Receive Date: 20161005
  Receipt Date: 20161005
  Transmission Date: 20170207
  Serious: Yes (Other)
  Sender: FDA-Public Use
  Company Number: US-ROCHE-1835050

PATIENT
  Age: 73 Year
  Sex: Female
  Weight: 158.8 kg

DRUGS (11)
  1. BEVACIZUMAB [Suspect]
     Active Substance: BEVACIZUMAB
     Dosage: COURSE 2
     Route: 042
     Dates: start: 20100617
  2. BEVACIZUMAB [Suspect]
     Active Substance: BEVACIZUMAB
     Dosage: COURSE 8
     Route: 042
     Dates: start: 20101202
  3. BEVACIZUMAB [Suspect]
     Active Substance: BEVACIZUMAB
     Dosage: COURSE 7
     Route: 042
     Dates: start: 20101104
  4. CARBOPLATIN. [Suspect]
     Active Substance: CARBOPLATIN
     Indication: ENDOMETRIAL CANCER
     Route: 042
  5. PACLITAXEL. [Suspect]
     Active Substance: PACLITAXEL
     Indication: ENDOMETRIAL CANCER
     Route: 042
  6. BEVACIZUMAB [Suspect]
     Active Substance: BEVACIZUMAB
     Indication: ENDOMETRIAL CANCER
     Dosage: COURSE 1
     Route: 042
     Dates: start: 20100527
  7. BEVACIZUMAB [Suspect]
     Active Substance: BEVACIZUMAB
     Dosage: COURSE 3
     Route: 042
     Dates: start: 20100708
  8. BEVACIZUMAB [Suspect]
     Active Substance: BEVACIZUMAB
     Dosage: COURSE 5
     Route: 042
     Dates: start: 20100909
  9. BEVACIZUMAB [Suspect]
     Active Substance: BEVACIZUMAB
     Dosage: COURSE 6
     Route: 042
     Dates: start: 20101007
  10. BEVACIZUMAB [Suspect]
     Active Substance: BEVACIZUMAB
     Dosage: COURSE 4
     Route: 042
     Dates: start: 20100729
  11. BEVACIZUMAB [Suspect]
     Active Substance: BEVACIZUMAB
     Dosage: COURSE 9
     Route: 042
     Dates: start: 20101223

REACTIONS (5)
  - Fatigue [Unknown]
  - Peripheral motor neuropathy [Unknown]
  - Vomiting [Unknown]
  - Neutrophil count decreased [Unknown]
  - Peripheral sensory neuropathy [Unknown]
